FAERS Safety Report 10069871 (Version 2)
Quarter: 2014Q2

REPORT INFORMATION
  Report Type: Spontaneous
  Country: US (occurrence: US)
  Receive Date: 20140410
  Receipt Date: 20140603
  Transmission Date: 20141212
  Serious: No
  Sender: FDA-Public Use
  Company Number: US-PFIZER INC-2014099703

PATIENT
  Age: 66 Year
  Sex: Female
  Weight: 90.7 kg

DRUGS (2)
  1. CELEBREX [Suspect]
     Indication: NEUROPATHY PERIPHERAL
     Dosage: 100 MG, DAILY
     Dates: start: 2005
  2. CELEBREX [Suspect]
     Indication: PAIN IN EXTREMITY

REACTIONS (4)
  - Drug ineffective [Unknown]
  - Accident [Unknown]
  - Body height decreased [Unknown]
  - Hypersensitivity [Unknown]
